FAERS Safety Report 25753797 (Version 3)
Quarter: 2025Q4

REPORT INFORMATION
  Report Type: Spontaneous
  Country: US (occurrence: US)
  Receive Date: 20250903
  Receipt Date: 20251201
  Transmission Date: 20260118
  Serious: Yes (Other)
  Sender: ELI LILLY AND COMPANY
  Company Number: US-ELI_LILLY_AND_COMPANY-US202508007904

PATIENT
  Age: 76 Year
  Sex: Female
  Weight: 64.9 kg

DRUGS (3)
  1. KISUNLA [Suspect]
     Active Substance: DONANEMAB-AZBT
     Indication: Dementia Alzheimer^s type
     Dosage: 350 MG, OTHER (EVERY 28 DAYS), 1ST DOSE
     Route: 042
     Dates: start: 20250516
  2. KISUNLA [Suspect]
     Active Substance: DONANEMAB-AZBT
     Dosage: 700 MG, OTHER (EVERY 28 DAYS), 2ND DOSE
     Route: 042
     Dates: start: 20250618
  3. KISUNLA [Suspect]
     Active Substance: DONANEMAB-AZBT
     Dosage: 1050 MG, OTHER (EVERY 28 DAYS), 3RD DOSE
     Route: 042
     Dates: start: 20250721

REACTIONS (1)
  - Amyloid related imaging abnormality-microhaemorrhages and haemosiderin deposits [Not Recovered/Not Resolved]
